FAERS Safety Report 5764019-0 (Version None)
Quarter: 2008Q2

REPORT INFORMATION
  Report Type: 
  Country: None (occurrence: None)
  Receive Date: 20080609
  Receipt Date: 20080218
  Transmission Date: 20081010
  Serious: No
  Sender: FDA-Public Use
  Company Number: 002#2#2008-00075

PATIENT
  Age: 49 Year
  Sex: Male

DRUGS (2)
  1. NEUPRO [Suspect]
     Indication: PARKINSON'S DISEASE
     Dosage: MG/24H,1 IN 1 D, TRANSDERMAL
     Route: 062
  2. REQUIP [Suspect]
     Indication: PARKINSON'S DISEASE

REACTIONS (2)
  - GAIT DISTURBANCE [None]
  - MUSCULOSKELETAL STIFFNESS [None]
